FAERS Safety Report 13512419 (Version 1)
Quarter: 2017Q2

REPORT INFORMATION
  Report Type: Spontaneous
  Country: US (occurrence: US)
  Receive Date: 20170504
  Receipt Date: 20170504
  Transmission Date: 20170830
  Serious: No
  Sender: FDA-Public Use
  Company Number: None

PATIENT
  Age: 63 Year
  Sex: Male
  Weight: 73 kg

DRUGS (1)
  1. TOLNAFTATE. [Suspect]
     Active Substance: TOLNAFTATE
     Dosage: UNKNOWN GM TOP
     Route: 061
     Dates: end: 20161217

REACTIONS (1)
  - Angioedema [None]

NARRATIVE: CASE EVENT DATE: 20161217
